FAERS Safety Report 24896335 (Version 1)
Quarter: 2025Q1

REPORT INFORMATION
  Report Type: Spontaneous
  Country: ET (occurrence: ET)
  Receive Date: 20250128
  Receipt Date: 20250128
  Transmission Date: 20250409
  Serious: Yes (Other)
  Sender: COOPERSURGICAL
  Company Number: ET-COOPERSURGICAL, INC.-2025CPS000320

PATIENT
  Age: 38 Year
  Sex: Female
  Weight: 59 kg

DRUGS (1)
  1. COPPER [Suspect]
     Active Substance: COPPER
     Indication: Contraception
     Route: 015

REACTIONS (2)
  - Device dislocation [Recovered/Resolved]
  - Perforation [Recovered/Resolved]
